FAERS Safety Report 7414805-6 (Version None)
Quarter: 2011Q2

REPORT INFORMATION
  Report Type: 
  Country: None (occurrence: None)
  Receive Date: 20110414
  Receipt Date: 20100914
  Transmission Date: 20111010
  Serious: No
  Sender: FDA-Public Use
  Company Number: A0881107A

PATIENT
  Age: 62 Year
  Sex: Female

DRUGS (7)
  1. SELSUN BLUE SHAMPOO [Concomitant]
  2. XANAX [Concomitant]
  3. WELLBUTRIN [Concomitant]
  4. BABY SHAMPOO [Concomitant]
  5. AMBIEN [Concomitant]
  6. LUXIQ [Suspect]
     Dosage: 1APP TWICE PER DAY
     Route: 061
     Dates: start: 20100801
  7. SHAMPOO [Concomitant]

REACTIONS (4)
  - PRURITUS [None]
  - CONDITION AGGRAVATED [None]
  - DRUG INEFFECTIVE [None]
  - BURNING SENSATION [None]
